FAERS Safety Report 13368170 (Version 1)
Quarter: 2017Q1

REPORT INFORMATION
  Report Type: Report from Study
  Country: None (occurrence: NL)
  Receive Date: 20170324
  Receipt Date: 20170324
  Transmission Date: 20170429
  Serious: Yes (Disabling, Other)
  Sender: FDA-Public Use
  Company Number: NL-ABBVIE-17K-114-1919993-00

PATIENT
  Sex: Male

DRUGS (1)
  1. DUODOPA [Suspect]
     Active Substance: CARBIDOPA\LEVODOPA
     Indication: PARKINSON^S DISEASE
     Dosage: MD 9.5, CD 3.9, ED 1.0
     Route: 050
     Dates: start: 20160404

REACTIONS (2)
  - Renal cancer [Not Recovered/Not Resolved]
  - Polyneuropathy [Not Recovered/Not Resolved]
